FAERS Safety Report 5312105-1 (Version None)
Quarter: 2007Q2

REPORT INFORMATION
  Report Type: 
  Country: None (occurrence: None)
  Receive Date: 20070430
  Receipt Date: 20070418
  Transmission Date: 20071010
  Serious: Yes (Hospitalization)
  Sender: FDA-Public Use
  Company Number: US-PURDUE-USA_2007_0027150

PATIENT
  Age: 80 Year
  Sex: Female

DRUGS (2)
  1. MORPHINE SULFATE [Suspect]
     Indication: PAIN
     Dosage: UNK, SEE TEXT
     Route: 048
  2. OXYCODONE HYDROCHLORIDE [Concomitant]
     Indication: BREAKTHROUGH PAIN

REACTIONS (6)
  - ABDOMINAL PAIN UPPER [None]
  - BALANCE DISORDER [None]
  - CHEST PAIN [None]
  - HALLUCINATION, VISUAL [None]
  - RESTLESSNESS [None]
  - VOMITING [None]
